FAERS Safety Report 6011501-7 (Version None)
Quarter: 2008Q4

REPORT INFORMATION
  Report Type: 
  Country: None (occurrence: None)
  Receive Date: 20081218
  Receipt Date: 19940601
  Transmission Date: 20090506
  Serious: Yes (Death, Life-Threatening, Other)
  Sender: FDA-Public Use
  Company Number: FR-ROCHE-96646

PATIENT
  Sex: Male

DRUGS (21)
  1. ROCEPHIN [Suspect]
     Route: 042
     Dates: start: 19930806, end: 19930807
  2. ROCEPHIN [Suspect]
     Route: 042
     Dates: start: 19930825, end: 19930825
  3. ROCEPHIN [Suspect]
     Route: 042
     Dates: start: 19930808, end: 19930809
  4. ANCOTIL [Suspect]
     Indication: DRUG USE FOR UNKNOWN INDICATION
     Route: 065
     Dates: start: 19930831
  5. NEUPOGEN [Suspect]
     Indication: NEUTROPENIA
     Route: 065
     Dates: start: 19930814, end: 19930905
  6. PEFLACINE [Concomitant]
     Route: 065
     Dates: start: 19930811, end: 19930824
  7. PEFLACINE [Concomitant]
     Route: 065
     Dates: start: 19930826, end: 19930829
  8. TIENAM [Concomitant]
     Route: 065
     Dates: start: 19930811, end: 19930818
  9. TIENAM [Concomitant]
     Route: 065
     Dates: start: 19930826
  10. CIPROFLOXACIN HYDROCHLORIDE [Concomitant]
     Route: 065
     Dates: start: 19930825, end: 19930825
  11. AMPHOTERICIN B [Concomitant]
     Route: 065
     Dates: start: 19930830, end: 19930901
  12. ZOVIRAX [Concomitant]
     Route: 065
     Dates: start: 19930831, end: 19930905
  13. TARGOCID [Concomitant]
     Route: 065
     Dates: start: 19930831, end: 19930905
  14. POLARAMINE [Concomitant]
     Route: 042
     Dates: start: 19930826, end: 19930830
  15. RANIPLEX [Concomitant]
     Route: 065
     Dates: start: 19930826, end: 19930902
  16. NOCTRAN [Concomitant]
     Route: 065
  17. CISPLATIN [Concomitant]
     Indication: DRUG USE FOR UNKNOWN INDICATION
  18. ARA-C [Concomitant]
     Indication: DRUG USE FOR UNKNOWN INDICATION
  19. ETOPOSIDE [Concomitant]
     Indication: DRUG USE FOR UNKNOWN INDICATION
  20. OROKEN [Concomitant]
     Dates: start: 19930809
  21. ORELOX [Concomitant]
     Indication: DRUG USE FOR UNKNOWN INDICATION
     Dates: start: 19930819, end: 19930824

REACTIONS (7)
  - BONE MARROW FAILURE [None]
  - COUGH [None]
  - DEATH [None]
  - DERMATITIS EXFOLIATIVE GENERALISED [None]
  - PLATELET COUNT DECREASED [None]
  - PURPURA [None]
  - STOMATITIS NECROTISING [None]
